FAERS Safety Report 7916621-5 (Version None)
Quarter: 2011Q4

REPORT INFORMATION
  Report Type: 
  Country: None (occurrence: None)
  Receive Date: 20111116
  Receipt Date: 20111110
  Transmission Date: 20120403
  Serious: No
  Sender: FDA-Public Use
  Company Number: US-PFIZER INC-2011275774

PATIENT
  Sex: Female

DRUGS (2)
  1. CHANTIX [Suspect]
     Dosage: 1 MG, UNK
  2. CHANTIX [Suspect]
     Dosage: 0.5 MG, DAILY

REACTIONS (3)
  - SLEEP DISORDER [None]
  - PALPITATIONS [None]
  - FEELING ABNORMAL [None]
